FAERS Safety Report 22778647 (Version 8)
Quarter: 2024Q1

REPORT INFORMATION
  Report Type: Spontaneous
  Country: US (occurrence: US)
  Receive Date: 20230802
  Receipt Date: 20240222
  Transmission Date: 20240409
  Serious: Yes (Other)
  Sender: FDA-Public Use
  Company Number: US-PFIZER INC-PV202300049650

PATIENT
  Age: 87 Year
  Sex: Female

DRUGS (4)
  1. IBRANCE [Suspect]
     Active Substance: PALBOCICLIB
     Indication: Metastases to liver
     Dosage: QD 2 WEEKS ON, 1 WEEK OFF
     Route: 048
  2. IBRANCE [Suspect]
     Active Substance: PALBOCICLIB
     Dosage: 2 WEEKS ON 1 WEEK OFF
     Route: 048
  3. IBRANCE [Suspect]
     Active Substance: PALBOCICLIB
     Dosage: TAKE 1 TAB DAILY FOR 2 WEEKS ON AND ONE WEEK OFF
     Route: 048
  4. IBRANCE [Suspect]
     Active Substance: PALBOCICLIB
     Dosage: QD (EVERY DAY) 21 DAYS ON, 7 OFF
     Route: 048

REACTIONS (5)
  - Blindness [Unknown]
  - Full blood count decreased [Unknown]
  - Off label use [Unknown]
  - Product use issue [Unknown]
  - Product prescribing issue [Unknown]
